FAERS Safety Report 13203330 (Version 1)
Quarter: 2017Q1

REPORT INFORMATION
  Report Type: Spontaneous
  Country: FR (occurrence: FR)
  Receive Date: 20170208
  Receipt Date: 20170208
  Transmission Date: 20170428
  Serious: Yes (Hospitalization)
  Sender: FDA-Public Use
  Company Number: FR-JNJFOC-20170203097

PATIENT
  Age: 57 Year
  Sex: Male
  Weight: 91.2 kg

DRUGS (24)
  1. LASILIX [Concomitant]
     Active Substance: FUROSEMIDE
     Route: 065
  2. VENTOLINE [Concomitant]
     Active Substance: ALBUTEROL
     Route: 065
  3. VALIUM [Suspect]
     Active Substance: DIAZEPAM
     Indication: PRODUCT USED FOR UNKNOWN INDICATION
     Route: 048
     Dates: end: 20160623
  4. FLAGYL [Concomitant]
     Active Substance: METRONIDAZOLE\METRONIDAZOLE HYDROCHLORIDE
     Route: 065
  5. DAFALGAN [Concomitant]
     Active Substance: ACETAMINOPHEN
     Route: 065
  6. RISPERDAL [Suspect]
     Active Substance: RISPERIDONE
     Indication: PRODUCT USED FOR UNKNOWN INDICATION
     Route: 048
     Dates: end: 20160623
  7. SPECIAFOLDINE [Concomitant]
     Active Substance: FOLIC ACID
     Route: 065
  8. ROCEPHINE [Concomitant]
     Active Substance: CEFTRIAXONE SODIUM
     Route: 065
  9. VITAMIN B1 AND B6 [Concomitant]
     Active Substance: PYRIDOXINE HYDROCHLORIDE\THIAMINE HYDROCHLORIDE
     Dosage: 1 AMPOULE/DAY
     Route: 042
  10. CALCIDIA [Suspect]
     Active Substance: CALCIUM POLYCARBOPHIL
     Indication: PRODUCT USED FOR UNKNOWN INDICATION
     Route: 048
  11. XATRAL [Concomitant]
     Active Substance: ALFUZOSIN
     Route: 065
  12. TAHOR [Concomitant]
     Active Substance: ATORVASTATIN CALCIUM
     Route: 065
  13. PANTOPRAZOLE [Concomitant]
     Active Substance: PANTOPRAZOLE SODIUM
     Route: 065
  14. AOTAL [Concomitant]
     Active Substance: ACAMPROSATE CALCIUM
     Route: 065
  15. MIMPARA [Concomitant]
     Active Substance: CINACALCET HYDROCHLORIDE
     Route: 065
  16. AZATHIOPRINE. [Concomitant]
     Active Substance: AZATHIOPRINE
     Route: 065
  17. FLUINDIONE [Concomitant]
     Active Substance: FLUINDIONE
     Route: 065
  18. SERTRALINE HYDROCHLORIDE. [Suspect]
     Active Substance: SERTRALINE HYDROCHLORIDE
     Indication: PRODUCT USED FOR UNKNOWN INDICATION
     Route: 048
     Dates: end: 20160623
  19. ATENOLOL. [Concomitant]
     Active Substance: ATENOLOL
     Route: 065
  20. COLCHICINE OPOCALCIUM [Concomitant]
     Active Substance: COLCHICINE
     Route: 065
  21. UN-ALFA [Suspect]
     Active Substance: ALFACALCIDOL
     Indication: PRODUCT USED FOR UNKNOWN INDICATION
     Route: 048
  22. ADVAGRAF [Concomitant]
     Active Substance: TACROLIMUS
     Route: 065
  23. DISODIUM PAMIDRONATE [Concomitant]
     Active Substance: PAMIDRONATE DISODIUM
     Route: 065
  24. ARANESP [Concomitant]
     Active Substance: DARBEPOETIN ALFA
     Route: 065

REACTIONS (6)
  - Confusional state [Recovered/Resolved]
  - Hypercalcaemia [Recovered/Resolved]
  - Tremor [Recovered/Resolved]
  - Hallucination, visual [Recovered/Resolved]
  - Coma scale abnormal [Recovered/Resolved]
  - Disorganised speech [Recovered/Resolved]

NARRATIVE: CASE EVENT DATE: 20160623
